FAERS Safety Report 5585801-9 (Version None)
Quarter: 2008Q1

REPORT INFORMATION
  Report Type: 
  Country: None (occurrence: None)
  Receive Date: 20080109
  Receipt Date: 20070618
  Transmission Date: 20080703
  Serious: Yes (Congenital Anomaly, Other)
  Sender: FDA-Public Use
  Company Number: GB-RANBAXY-2007RR-10128

PATIENT

DRUGS (1)
  1. RISPERIDONE [Suspect]
     Dosage: 2 MG, QD
     Route: 064
     Dates: start: 20051001, end: 20061001

REACTIONS (1)
  - CONGENITAL HEART VALVE DISORDER [None]
